FAERS Safety Report 11425851 (Version 1)
Quarter: 2015Q3

REPORT INFORMATION
  Report Type: Spontaneous
  Country: US (occurrence: US)
  Receive Date: 20150821
  Receipt Date: 20150821
  Transmission Date: 20151125
  Serious: No
  Sender: FDA-Public Use
  Company Number: US-ELI_LILLY_AND_COMPANY-US201304001968

PATIENT
  Age: 61 Year
  Sex: Male

DRUGS (1)
  1. CIALIS [Suspect]
     Active Substance: TADALAFIL
     Indication: ERECTILE DYSFUNCTION
     Dosage: 10 MG, PRN

REACTIONS (7)
  - Back pain [Unknown]
  - Arthritis [Unknown]
  - Dizziness [Unknown]
  - Inflammation [Unknown]
  - Wrong technique in product usage process [Unknown]
  - Blood pressure increased [Unknown]
  - Anxiety [Unknown]
